FAERS Safety Report 25483430 (Version 1)
Quarter: 2025Q2

REPORT INFORMATION
  Report Type: Spontaneous
  Country: US (occurrence: US)
  Receive Date: 20250626
  Receipt Date: 20250626
  Transmission Date: 20250716
  Serious: Yes (Hospitalization)
  Sender: MYLAN
  Company Number: US-MYLANLABS-2025M1052932

PATIENT
  Age: 43 Year
  Sex: Female

DRUGS (3)
  1. PREDNISONE [Suspect]
     Active Substance: PREDNISONE
     Indication: Retinal vascular disorder
     Dosage: 50 MILLIGRAM, QD
  2. PREDNISONE [Suspect]
     Active Substance: PREDNISONE
     Indication: Choroiditis
  3. IZERVAY [Concomitant]
     Active Substance: AVACINCAPTAD PEGOL SODIUM
     Indication: Stargardt^s disease

REACTIONS (1)
  - Drug ineffective [Unknown]
